FAERS Safety Report 8419547-6 (Version None)
Quarter: 2012Q2

REPORT INFORMATION
  Report Type: 
  Country: None (occurrence: None)
  Receive Date: 20120607
  Receipt Date: 20120531
  Transmission Date: 20120825
  Serious: Yes (Life-Threatening)
  Sender: FDA-Public Use
  Company Number: JP-ASTRAZENECA-2012SE36459

PATIENT
  Age: 82 Year
  Sex: Male

DRUGS (6)
  1. MEROPENEM [Suspect]
     Route: 042
     Dates: start: 20120516, end: 20120516
  2. MEROPENEM [Suspect]
     Route: 042
     Dates: start: 20120521, end: 20120521
  3. CLINDAMYCIN [Concomitant]
     Dates: start: 20120516, end: 20120520
  4. MEROPENEM [Suspect]
     Indication: SEPSIS
     Route: 042
     Dates: start: 20120331, end: 20120409
  5. MEROPENEM [Suspect]
     Route: 042
     Dates: start: 20120517
  6. MEROPENEM [Suspect]
     Route: 042
     Dates: end: 20120528

REACTIONS (2)
  - DISSEMINATED INTRAVASCULAR COAGULATION [None]
  - SEPSIS [None]
